FAERS Safety Report 16907951 (Version 2)
Quarter: 2019Q4

REPORT INFORMATION
  Report Type: Report from Study
  Country: JP (occurrence: JP)
  Receive Date: 20191011
  Receipt Date: 20191206
  Transmission Date: 20200122
  Serious: Yes (Death, Life-Threatening, Hospitalization, Disabling, Other)
  Sender: FDA-Public Use
  Company Number: JP-ACTELION-A-CH2018-173179

PATIENT
  Age: 71 Year
  Sex: Male

DRUGS (22)
  1. FUROSEMIDE. [Suspect]
     Active Substance: FUROSEMIDE
     Dosage: 20 MG, QD
     Route: 042
     Dates: start: 20181029, end: 20181118
  2. HANP [Suspect]
     Active Substance: CARPERITIDE
     Indication: RIGHT VENTRICULAR FAILURE
     Dosage: 0.012 MCG, QD
     Route: 042
     Dates: start: 20180122, end: 20180123
  3. SPIRONOLACTONE. [Suspect]
     Active Substance: SPIRONOLACTONE
     Indication: RIGHT VENTRICULAR FAILURE
     Dosage: 25 MG, QD
     Route: 048
     Dates: start: 20170726
  4. AZOSEMIDE [Suspect]
     Active Substance: AZOSEMIDE
     Dosage: 45 MG, QD
     Route: 048
     Dates: start: 20180421
  5. OPSUMIT [Suspect]
     Active Substance: MACITENTAN
     Indication: PULMONARY ARTERIAL HYPERTENSION
     Dosage: 10 MG, UNK
     Route: 048
     Dates: start: 20180125, end: 20181225
  6. AZOSEMIDE [Suspect]
     Active Substance: AZOSEMIDE
     Dosage: UNK
     Route: 048
     Dates: end: 20181225
  7. FUROSEMIDE. [Suspect]
     Active Substance: FUROSEMIDE
     Dosage: 20 MG, QD
     Route: 042
     Dates: start: 20180522, end: 20180522
  8. SAMSCA [Suspect]
     Active Substance: TOLVAPTAN
     Indication: RIGHT VENTRICULAR FAILURE
     Dosage: UNK
     Route: 048
     Dates: start: 20180724, end: 20181225
  9. DOBUPUM [Concomitant]
     Active Substance: DOBUTAMINE HYDROCHLORIDE
     Dosage: 2 MCG, QD
     Dates: start: 20180411, end: 20180418
  10. OMEPRAZOLE. [Concomitant]
     Active Substance: OMEPRAZOLE
  11. FUROSEMIDE. [Suspect]
     Active Substance: FUROSEMIDE
     Indication: RIGHT VENTRICULAR FAILURE
     Dosage: 20 MG, QD
     Route: 042
     Dates: start: 20180410, end: 20180410
  12. AZOSEMIDE [Suspect]
     Active Substance: AZOSEMIDE
     Dosage: 60 MG, QD
     Route: 048
     Dates: start: 20180411, end: 20180420
  13. HANP [Suspect]
     Active Substance: CARPERITIDE
     Dosage: 0.012 MCG, QD
     Route: 042
     Dates: start: 20180411, end: 20180415
  14. REVATIO [Concomitant]
     Active Substance: SILDENAFIL CITRATE
  15. AMLODIPINE [Concomitant]
     Active Substance: AMLODIPINE BESYLATE
  16. AZOSEMIDE [Suspect]
     Active Substance: AZOSEMIDE
     Indication: RIGHT VENTRICULAR FAILURE
     Dosage: 45 MG, QD
     Route: 048
     Dates: start: 20180126, end: 20180410
  17. VENTAVIS [Suspect]
     Active Substance: ILOPROST
     Indication: PULMONARY ARTERIAL HYPERTENSION
     Dosage: 2.5-5MCG 6 TIMES A DAY
     Route: 055
     Dates: start: 20181126, end: 20181127
  18. DOBUPUM [Concomitant]
     Active Substance: DOBUTAMINE HYDROCHLORIDE
     Dosage: 2 UNK, UNK
     Dates: start: 20180122, end: 20180131
  19. AZOSEMIDE [Suspect]
     Active Substance: AZOSEMIDE
     Dosage: 30 MG, QD
     Route: 048
     Dates: start: 20170727, end: 20180125
  20. SPIRONOLACTONE. [Suspect]
     Active Substance: SPIRONOLACTONE
     Dosage: UNK
     Route: 048
     Dates: end: 20181225
  21. ULTIBRO [Concomitant]
     Active Substance: GLYCOPYRRONIUM\INDACATEROL
  22. REBAMIPIDE [Concomitant]
     Active Substance: REBAMIPIDE

REACTIONS (17)
  - Pulmonary hypertension [Fatal]
  - Condition aggravated [Recovering/Resolving]
  - Dyspnoea [Recovering/Resolving]
  - Thrombocytopenia [Recovering/Resolving]
  - Renal impairment [Recovering/Resolving]
  - Cardio-respiratory arrest [Fatal]
  - Right ventricular failure [Not Recovered/Not Resolved]
  - Malaise [Recovering/Resolving]
  - Weight increased [Recovering/Resolving]
  - Oedema peripheral [Fatal]
  - Blood uric acid increased [Recovered/Resolved]
  - Loss of consciousness [Recovered/Resolved]
  - Exercise tolerance decreased [Not Recovered/Not Resolved]
  - Constipation [Recovered/Resolved]
  - Hypoxia [Recovered/Resolved]
  - Dermatitis contact [Recovering/Resolving]
  - Psoriasis [Recovering/Resolving]

NARRATIVE: CASE EVENT DATE: 20180307
